FAERS Safety Report 6090678-1 (Version None)
Quarter: 2009Q1

REPORT INFORMATION
  Report Type: 
  Country: None (occurrence: None)
  Receive Date: 20090224
  Receipt Date: 20090127
  Transmission Date: 20090719
  Serious: No
  Sender: FDA-Public Use
  Company Number: US-ABBOTT-09P-163-0500540-00

PATIENT
  Sex: Male
  Weight: 118.04 kg

DRUGS (2)
  1. SIMCOR [Suspect]
     Indication: BLOOD CHOLESTEROL INCREASED
     Dosage: 500/20
     Route: 048
     Dates: start: 20081101, end: 20090101
  2. SIMCOR [Suspect]
     Route: 048
     Dates: start: 20090101

REACTIONS (1)
  - BLOOD GLUCOSE INCREASED [None]
